FAERS Safety Report 18890486 (Version 1)
Quarter: 2021Q1

REPORT INFORMATION
  Report Type: Report from Study
  Country: DE (occurrence: DE)
  Receive Date: 20210214
  Receipt Date: 20210214
  Transmission Date: 20210420
  Serious: Yes (Other)
  Sender: FDA-Public Use
  Company Number: DE-SUN PHARMACEUTICAL INDUSTRIES LTD-2021R1-279431

PATIENT
  Sex: Female

DRUGS (5)
  1. BUDESONIDE. [Concomitant]
     Active Substance: BUDESONIDE
     Indication: ASTHMA
     Route: 065
  2. TICK?BORNE ENCEPHALITIS VACCINE [Concomitant]
     Active Substance: TICK-BORNE ENCEPHALITIS VACCINE
     Indication: TICK-BORNE ENCEPHALITIS IMMUNISATION
     Route: 065
  3. PARACETAMOL [Suspect]
     Active Substance: ACETAMINOPHEN
     Indication: PAIN
     Dosage: 500?1000 MILLIGRAM, DAILY(AS NEEDED, 4000 IN TOTAL)
     Route: 065
  4. LEVONORGESTREL. [Concomitant]
     Active Substance: LEVONORGESTREL
     Indication: CONTRACEPTION
     Route: 065
  5. ETHINYL ESTRADIOL [Concomitant]
     Active Substance: ETHINYL ESTRADIOL
     Indication: CONTRACEPTION
     Route: 065

REACTIONS (3)
  - Live birth [Unknown]
  - Exposure during pregnancy [Unknown]
  - Oligohydramnios [Unknown]
